FAERS Safety Report 9147218 (Version 2)
Quarter: 2013Q2

REPORT INFORMATION
  Report Type: Report from Study
  Country: US (occurrence: US)
  Receive Date: 20130307
  Receipt Date: 20130402
  Transmission Date: 20140414
  Serious: Yes (Hospitalization, Other)
  Sender: FDA-Public Use
  Company Number: US-ROCHE-1198970

PATIENT
  Age: 54 Year
  Sex: Female
  Weight: 113.5 kg

DRUGS (19)
  1. HERCEPTIN [Suspect]
     Indication: BREAST CANCER
     Dosage: LOADING DOSE 4MG/KG
     Route: 042
     Dates: start: 20130123, end: 20130129
  2. HERCEPTIN [Suspect]
     Dosage: MAITAINENCE DOSE:2MG/KG
     Route: 042
     Dates: start: 20130123, end: 20130129
  3. DOXORUBICIN [Suspect]
     Indication: BREAST CANCER
     Route: 042
     Dates: start: 20121128, end: 20130109
  4. CYCLOPHOSPHAMIDE [Suspect]
     Indication: BREAST CANCER
     Route: 042
     Dates: start: 20121128, end: 20130109
  5. TAXOL [Suspect]
     Indication: BREAST CANCER
     Route: 042
     Dates: start: 20130123, end: 20130129
  6. RANITIDINE [Concomitant]
     Dosage: WITH TREATMENT
     Route: 042
     Dates: start: 20130123
  7. PREDNISONE [Concomitant]
     Route: 048
  8. ATORVASTATIN [Concomitant]
     Indication: HYPERCHOLESTEROLAEMIA
     Route: 048
     Dates: start: 20121114
  9. LEVOTHYROXINE [Concomitant]
     Indication: HYPOTHYROIDISM
     Route: 048
     Dates: start: 20121114
  10. IBUPROFEN [Concomitant]
     Indication: PAIN
     Dosage: PRN
     Route: 048
     Dates: start: 20121212
  11. ONDANSETRON HCL [Concomitant]
     Indication: NAUSEA
     Dosage: PRN
     Route: 048
     Dates: start: 20121114
  12. PROCHLORPERAZINE MALEATE [Concomitant]
     Indication: NAUSEA
     Dosage: PRN
     Route: 048
     Dates: start: 20121114
  13. PALONOSETRON [Concomitant]
     Indication: NAUSEA
     Dosage: WITH TREATMENT
     Route: 042
  14. FOSAPREPITANT [Concomitant]
     Indication: NAUSEA
     Dosage: WITH TREATMENT
     Route: 042
  15. DEXAMETHASONE [Concomitant]
     Indication: NAUSEA
     Dosage: WITH TREATMENT
     Route: 042
  16. LORAZEPAM [Concomitant]
     Indication: NAUSEA
     Dosage: WITH TREATMENT
     Route: 042
  17. PEGFILGRASTIM [Concomitant]
     Dosage: SQ, WITH AC TREATMENT
     Route: 065
     Dates: start: 20121129, end: 20130110
  18. ENOXAPARIN [Concomitant]
     Dosage: SQ
     Route: 065
     Dates: start: 20121228
  19. HYDROCODONE/ACETAMINOPHEN [Concomitant]
     Indication: PAIN
     Dosage: 5/325 MG,PRN
     Route: 048
     Dates: start: 20121114

REACTIONS (4)
  - Atypical pneumonia [Recovering/Resolving]
  - Lung infection [Recovered/Resolved]
  - Hypoxia [Recovered/Resolved]
  - Dyspnoea [Recovered/Resolved]
